FAERS Safety Report 4659592-X (Version None)
Quarter: 2005Q2

REPORT INFORMATION
  Report Type: 
  Country: None (occurrence: None)
  Receive Date: 20050511
  Receipt Date: 20050331
  Transmission Date: 20051028
  Serious: Yes (Life-Threatening)
  Sender: FDA-Public Use
  Company Number: JP-MERCK-0504USA00511

PATIENT
  Age: 68 Year
  Sex: Male

DRUGS (8)
  1. PRIMAXIN [Suspect]
     Indication: PNEUMONIA
     Route: 051
     Dates: start: 20050327, end: 20050407
  2. CARBOCYSTEINE [Concomitant]
     Indication: SPUTUM RETENTION
     Route: 048
     Dates: start: 20050316
  3. ELECTROLYTES (UNSPECIFIED) [Concomitant]
     Route: 042
  4. ALLOPURINOL [Concomitant]
     Indication: HYPERURICAEMIA
     Route: 048
  5. GLYBURIDE [Concomitant]
     Indication: DIABETES MELLITUS
     Route: 048
     Dates: end: 20050330
  6. VOGLIBOSE [Concomitant]
     Indication: DIABETES MELLITUS
     Route: 048
  7. CARBENIN [Concomitant]
     Indication: PNEUMONIA
     Route: 051
     Dates: start: 20050311, end: 20050324
  8. FAROM [Concomitant]
     Indication: PNEUMONIA
     Route: 048
     Dates: start: 20050325, end: 20050326

REACTIONS (1)
  - HYPOGLYCAEMIA [None]
